FAERS Safety Report 7393004-0 (Version None)
Quarter: 2011Q2

REPORT INFORMATION
  Report Type: 
  Country: None (occurrence: None)
  Receive Date: 20110404
  Receipt Date: 20110328
  Transmission Date: 20111010
  Serious: Yes (Hospitalization)
  Sender: FDA-Public Use
  Company Number: US-BAXTER-2010BH002404

PATIENT
  Age: 47 Year
  Sex: Female
  Weight: 63 kg

DRUGS (11)
  1. GAMMAGARD LIQUID [Suspect]
     Route: 042
     Dates: start: 20100114, end: 20100114
  2. BENADRYL [Concomitant]
     Indication: PREMEDICATION
     Route: 042
  3. FENTANYL [Concomitant]
     Route: 061
  4. ACETAMINOPHEN [Concomitant]
     Indication: PREMEDICATION
     Route: 048
  5. TRAZODONE HCL [Concomitant]
     Indication: SLEEP DISORDER
     Route: 048
  6. GAMMAGARD LIQUID [Suspect]
     Indication: BLOOD IMMUNOGLOBULIN G DECREASED
     Route: 042
     Dates: start: 20080901
  7. DILAUDID [Concomitant]
     Indication: FIBROMYALGIA
  8. WELLBUTRIN [Concomitant]
     Route: 048
  9. PREMPRO [Concomitant]
  10. GAMMAGARD LIQUID [Suspect]
     Route: 042
     Dates: start: 20100114, end: 20100114
  11. PROZAC [Concomitant]
     Route: 048

REACTIONS (5)
  - MALAISE [None]
  - HEADACHE [None]
  - MENINGITIS VIRAL [None]
  - FLUSHING [None]
  - VOMITING [None]
